FAERS Safety Report 9800291 (Version 1)
Quarter: 2014Q1

REPORT INFORMATION
  Report Type: Spontaneous
  Country: US (occurrence: US)
  Receive Date: 20140106
  Receipt Date: 20140106
  Transmission Date: 20141002
  Serious: Yes (Other)
  Sender: FDA-Public Use
  Company Number: CHPA2013US019013

PATIENT
  Age: 77 Year
  Sex: Female

DRUGS (3)
  1. EX-LAX MAX STR LAX PILLS SENNA [Suspect]
     Indication: CONSTIPATION
     Dosage: 3 DF, QD
     Route: 048
  2. EX-LAX REG STR LAX PILLS SENNA [Suspect]
     Indication: CONSTIPATION
     Dosage: 3-5 DF, UNK
     Route: 048
     Dates: end: 20131229
  3. ACETYLSALICYLIC ACID [Suspect]

REACTIONS (8)
  - Back injury [Unknown]
  - Spinal cord disorder [Unknown]
  - Malaise [Unknown]
  - Headache [Unknown]
  - Vomiting [Unknown]
  - Incorrect dose administered [Unknown]
  - Incorrect drug administration duration [Unknown]
  - Drug ineffective [Unknown]
